FAERS Safety Report 20692030 (Version 5)
Quarter: 2022Q2

REPORT INFORMATION
  Report Type: Spontaneous
  Country: CA (occurrence: CA)
  Receive Date: 20220408
  Receipt Date: 20220610
  Transmission Date: 20220721
  Serious: Yes (Hospitalization, Other)
  Sender: FDA-Public Use
  Company Number: CA-CELLTRION INC.-2022CA004381

PATIENT

DRUGS (7)
  1. INFLECTRA [Suspect]
     Active Substance: INFLIXIMAB-DYYB
     Indication: Colitis ulcerative
     Dosage: 810 MG,0,2,6 THEN EVERY 8 WEEKS.
     Route: 042
     Dates: start: 20220309, end: 20220331
  2. INFLECTRA [Suspect]
     Active Substance: INFLIXIMAB-DYYB
     Dosage: 810 MG,0,2,6 THEN EVERY 8 WEEKS
     Dates: start: 20220331
  3. PREDNISONE [Concomitant]
     Active Substance: PREDNISONE
     Dosage: UNK
  4. PREDNISONE [Concomitant]
     Active Substance: PREDNISONE
     Dosage: 40 MG (5MG X 8 TABS) OD
  5. DIPHENHYDRAMINE [Concomitant]
     Active Substance: DIPHENHYDRAMINE
     Dosage: 50 ML
  6. XELJANZ [Concomitant]
     Active Substance: TOFACITINIB CITRATE
     Dosage: 10 MG, BID
     Dates: start: 20220413
  7. VITAMIN D NOS [Concomitant]
     Active Substance: VITAMIN D NOS
     Dosage: 2000 IU, OD

REACTIONS (11)
  - Colitis ulcerative [Unknown]
  - Tachycardia [Unknown]
  - Dyspnoea [Unknown]
  - Rash [Unknown]
  - Hypertension [Recovering/Resolving]
  - Drug hypersensitivity [Unknown]
  - Dizziness [Unknown]
  - Urticaria [Unknown]
  - Off label use [Unknown]
  - Intentional product use issue [Unknown]
  - Incorrect dose administered [Unknown]

NARRATIVE: CASE EVENT DATE: 20220331
